FAERS Safety Report 8938052 (Version 1)
Quarter: 2012Q4

REPORT INFORMATION
  Report Type: 
  Country: US (occurrence: US)
  Receive Date: 20121130
  Receipt Date: 20121130
  Transmission Date: 20130627
  Serious: No
  Sender: FDA-Public Use
  Company Number: US-B.I. PHARMACEUTICALS,INC./RIDGEFIELD-2012-BI-01429BP

PATIENT
  Sex: Female

DRUGS (3)
  1. COMBIVENT [Suspect]
  2. SPIRIVA [Suspect]
  3. ALBUTEROL [Concomitant]

REACTIONS (2)
  - Rash erythematous [Unknown]
  - Oedema mouth [Unknown]
